FAERS Safety Report 6357128-9 (Version None)
Quarter: 2009Q3

REPORT INFORMATION
  Report Type: 
  Country: None (occurrence: None)
  Receive Date: 20090910
  Receipt Date: 20090824
  Transmission Date: 20100115
  Serious: Yes (Other)
  Sender: FDA-Public Use
  Company Number: MC200900267

PATIENT
  Age: 65 Year
  Sex: Male
  Weight: 83.6 kg

DRUGS (1)
  1. CLEVIPREX [Suspect]
     Indication: CORONARY ARTERY BYPASS
     Dosage: INTRAVENOUS
     Route: 042
     Dates: start: 20090724, end: 20090725

REACTIONS (1)
  - ATRIAL FIBRILLATION [None]
